FAERS Safety Report 8102739-3 (Version None)
Quarter: 2012Q1

REPORT INFORMATION
  Report Type: 
  Country: None (occurrence: None)
  Receive Date: 20120201
  Receipt Date: 20120119
  Transmission Date: 20120608
  Serious: Yes (Hospitalization)
  Sender: FDA-Public Use
  Company Number: JP-UCBSA-047268

PATIENT
  Age: 24 Year
  Sex: Female
  Weight: 45 kg

DRUGS (5)
  1. ZOVIRAX [Suspect]
     Dosage: DOSE: UNKNOWN
     Dates: start: 20111121
  2. PHENYTOIN SODIUM CAP [Suspect]
     Indication: STATUS EPILEPTICUS
     Dosage: DAILY DOSE: 300MG
     Route: 048
     Dates: start: 20111121, end: 20111130
  3. DIAZEPAM [Concomitant]
     Dates: start: 20111121, end: 20111125
  4. DEPAKENE [Suspect]
     Indication: STATUS EPILEPTICUS
     Dosage: DAILY DOSE:800MG
     Route: 048
     Dates: start: 20111121
  5. KEPPRA [Suspect]
     Indication: STATUS EPILEPTICUS
     Route: 048
     Dates: start: 20111120, end: 20111130

REACTIONS (1)
  - DRUG ERUPTION [None]
